FAERS Safety Report 4833495-X (Version None)
Quarter: 2005Q4

REPORT INFORMATION
  Report Type: 
  Country: None (occurrence: None)
  Receive Date: 20051117
  Receipt Date: 20051101
  Transmission Date: 20060501
  Serious: Yes (Death)
  Sender: FDA-Public Use
  Company Number: JP_050907521

PATIENT
  Age: 45 Year
  Sex: Male

DRUGS (8)
  1. ZYPREXA [Suspect]
     Indication: SCHIZOPHRENIA
     Dosage: 5 MG DAY
     Dates: start: 20050829, end: 20050829
  2. ZYPREXA [Suspect]
     Indication: SCHIZOPHRENIA
     Dosage: 20 MG DAY
     Dates: start: 20050830
  3. RISPERDAL [Concomitant]
  4. SETOUS (ZOTEPINE) [Concomitant]
  5. MEILAX (ETHYL LOFLAZEPATE) [Concomitant]
  6. RHYTHMY (RILMAZAFONE) [Concomitant]
  7. NITRAZEPAM [Concomitant]
  8. VALPROATE SODIUM [Concomitant]

REACTIONS (9)
  - ABNORMAL BEHAVIOUR [None]
  - AGGRESSION [None]
  - BODY TEMPERATURE DECREASED [None]
  - CARDIO-RESPIRATORY ARREST [None]
  - MUSCULOSKELETAL STIFFNESS [None]
  - MYDRIASIS [None]
  - PULMONARY EMBOLISM [None]
  - RESTLESSNESS [None]
  - SOMNOLENCE [None]
